FAERS Safety Report 14520564 (Version 2)
Quarter: 2018Q1

REPORT INFORMATION
  Report Type: Report from Study
  Country: US (occurrence: US)
  Receive Date: 20180212
  Receipt Date: 20180326
  Transmission Date: 20180509
  Serious: Yes (Death, Hospitalization)
  Sender: FDA-Public Use
  Company Number: US-INCYTE CORPORATION-2017IN006470

PATIENT

DRUGS (3)
  1. INCB018424 (RUXOLITINIB) + DECITABINE [Suspect]
     Active Substance: DECITABINE\RUXOLITINIB
     Indication: PRIMARY MYELOFIBROSIS
     Dosage: 10 MG BID, DAY 1-28
     Route: 048
     Dates: start: 20161024, end: 20170817
  2. INCB018424 (RUXOLITINIB) + DECITABINE [Suspect]
     Active Substance: DECITABINE\RUXOLITINIB
     Dosage: 20 MG/M2, DAY 1-5
     Route: 042
     Dates: start: 20161024, end: 20170817
  3. ALLOPURINOL. [Concomitant]
     Active Substance: ALLOPURINOL
     Indication: PRODUCT USED FOR UNKNOWN INDICATION

REACTIONS (1)
  - Progressive multifocal leukoencephalopathy [Fatal]

NARRATIVE: CASE EVENT DATE: 20170817
